FAERS Safety Report 4811404-7 (Version None)
Quarter: 2005Q4

REPORT INFORMATION
  Report Type: 
  Country: None (occurrence: None)
  Receive Date: 20051025
  Receipt Date: 20051025
  Transmission Date: 20060501
  Serious: Yes (Hospitalization)
  Sender: FDA-Public Use
  Company Number: None

PATIENT
  Sex: Female
  Weight: 50 kg

DRUGS (1)
  1. CLONAZEPAM [Suspect]
     Indication: CHOREOATHETOSIS
     Dosage: PO 1 MG
     Route: 048

REACTIONS (2)
  - CHOREOATHETOSIS [None]
  - HYPERSENSITIVITY [None]
